FAERS Safety Report 4891197-8 (Version None)
Quarter: 2006Q1

REPORT INFORMATION
  Report Type: 
  Country: None (occurrence: None)
  Receive Date: 20060125
  Receipt Date: 20060113
  Transmission Date: 20060701
  Serious: Yes (Hospitalization)
  Sender: FDA-Public Use
  Company Number: NL-GLAXOSMITHKLINE-B0406913A

PATIENT
  Age: 79 Year
  Sex: Female

DRUGS (9)
  1. FONDAPARINUX SODIUM [Suspect]
     Indication: ANGINA UNSTABLE
     Dosage: 2.5MG PER DAY
     Route: 058
     Dates: start: 20031006, end: 20031013
  2. ASPIRIN [Concomitant]
  3. CLOPIDOGREL [Concomitant]
  4. ENOXAPARIN SODIUM [Concomitant]
     Dosage: 80MG TWICE PER DAY
     Route: 058
     Dates: start: 20031012, end: 20031016
  5. FUROSEMIDE [Concomitant]
  6. PRAVASTATIN [Concomitant]
  7. SOTALOL HCL [Concomitant]
  8. AMLODIPINE [Concomitant]
  9. THYRAX [Concomitant]

REACTIONS (3)
  - CARDIAC TAMPONADE [None]
  - PERICARDIAL HAEMORRHAGE [None]
  - PULMONARY EMBOLISM [None]
